FAERS Safety Report 26177365 (Version 2)
Quarter: 2025Q4

REPORT INFORMATION
  Report Type: Spontaneous
  Country: EU (occurrence: EU)
  Receive Date: 20251219
  Receipt Date: 20251224
  Transmission Date: 20260117
  Serious: Yes (Death)
  Sender: NOVARTIS
  Company Number: EU-002147023-NVSC2025RO193696

PATIENT
  Age: 54 Year
  Sex: Female

DRUGS (2)
  1. RIBOCICLIB [Suspect]
     Active Substance: RIBOCICLIB
     Indication: Metastatic neoplasm
     Dosage: 200 MG, TID (200 MG X  3 TABLETS  PER DAY,DAILY FOR 21  DAYS, 7  DAYS BREAK)
     Route: 048
     Dates: start: 202506, end: 20251212
  2. LETROZOLE [Concomitant]
     Active Substance: LETROZOLE
     Indication: Product used for unknown indication
     Dosage: UNK
     Route: 065

REACTIONS (3)
  - Haemorrhagic stroke [Fatal]
  - Speech disorder [Fatal]
  - Memory impairment [Fatal]

NARRATIVE: CASE EVENT DATE: 20251213
